FAERS Safety Report 4455145-7 (Version None)
Quarter: 2004Q3

REPORT INFORMATION
  Report Type: 
  Country: None (occurrence: None)
  Receive Date: 20040907
  Receipt Date: 20040416
  Transmission Date: 20050211
  Serious: Yes (Other)
  Sender: FDA-Public Use
  Company Number: JP-GLAXOSMITHKLINE-B0330513A

PATIENT
  Age: 66 Year
  Sex: Male
  Weight: 50.1 kg

DRUGS (8)
  1. PAXIL [Suspect]
     Indication: DEPRESSION
     Dosage: 10MG PER DAY
     Route: 048
     Dates: start: 20040315, end: 20040325
  2. TRYPTANOL [Concomitant]
     Indication: DEPRESSION
     Route: 048
     Dates: start: 20040121, end: 20040325
  3. LEXOTAN [Concomitant]
     Indication: DEPRESSION
     Dosage: 6MG PER DAY
     Route: 048
     Dates: end: 20040402
  4. DOGMATYL [Concomitant]
     Indication: DEPRESSION
     Dosage: 300MG PER DAY
     Route: 048
     Dates: end: 20040325
  5. DEPAS [Concomitant]
     Indication: DEPRESSION
     Dosage: 1MG PER DAY
     Route: 048
     Dates: start: 20040121, end: 20040325
  6. DEPROMEL [Concomitant]
     Indication: DEPRESSION
     Route: 048
     Dates: start: 20040121, end: 20040325
  7. ROHYPNOL [Concomitant]
     Indication: DEPRESSION
     Dosage: 1MG PER DAY
     Route: 048
     Dates: start: 20040121, end: 20040325
  8. TRIAZOLAM [Concomitant]
     Indication: DEPRESSION
     Dosage: .25MG PER DAY
     Route: 048
     Dates: start: 20040121, end: 20040325

REACTIONS (10)
  - ASTHENIA [None]
  - BLOOD CREATINE PHOSPHOKINASE INCREASED [None]
  - C-REACTIVE PROTEIN INCREASED [None]
  - CONDITION AGGRAVATED [None]
  - DECREASED APPETITE [None]
  - DEPRESSION [None]
  - GAIT DISTURBANCE [None]
  - INSOMNIA [None]
  - NEUROLEPTIC MALIGNANT SYNDROME [None]
  - WHITE BLOOD CELL COUNT INCREASED [None]
